FAERS Safety Report 8987878 (Version 1)
Quarter: 2012Q4

REPORT INFORMATION
  Report Type: 
  Country: JP (occurrence: JP)
  Receive Date: 20121227
  Receipt Date: 20121227
  Transmission Date: 20130627
  Serious: Yes (Other)
  Sender: FDA-Public Use
  Company Number: JP-GLAXOSMITHKLINE-B0847439A

PATIENT
  Sex: Female

DRUGS (12)
  1. LAMICTAL [Suspect]
     Indication: SCHIZOPHRENIA
     Dosage: 12.5MG Per day
     Route: 048
     Dates: start: 20120110, end: 20120214
  2. LAMICTAL [Suspect]
     Indication: SCHIZOPHRENIA
     Dosage: 25MG Per day
     Route: 048
     Dates: start: 20120215, end: 20120619
  3. LAMICTAL [Suspect]
     Indication: SCHIZOPHRENIA
     Dosage: 50MG Per day
     Route: 048
     Dates: start: 20120620, end: 20120828
  4. LAMICTAL [Suspect]
     Indication: SCHIZOPHRENIA
     Dosage: 61.5MG Per day
     Route: 048
     Dates: start: 20120829, end: 20120829
  5. LAMICTAL [Suspect]
     Indication: SCHIZOPHRENIA
     Dosage: 50MG Per day
     Route: 048
     Dates: start: 20120830, end: 20120926
  6. LAMICTAL [Suspect]
     Indication: SCHIZOPHRENIA
     Dosage: 61.5MG Per day
     Route: 048
     Dates: start: 20120927, end: 20121016
  7. LAMICTAL [Suspect]
     Indication: SCHIZOPHRENIA
     Dosage: 75MG Per day
     Route: 048
     Dates: start: 20121017, end: 20121118
  8. ZYPREXA [Concomitant]
     Indication: SCHIZOPHRENIA
     Dosage: 20MG Per day
     Route: 048
  9. SILECE [Concomitant]
     Indication: INSOMNIA
     Dosage: 2MG Per day
     Route: 048
  10. SEROQUEL [Concomitant]
     Indication: SCHIZOPHRENIA
     Dosage: 180MG Per day
     Route: 048
  11. MAGMITT [Concomitant]
     Indication: CONSTIPATION
     Dosage: 330MG Per day
     Route: 048
  12. PURSENNID [Concomitant]
     Indication: CONSTIPATION
     Dosage: 12MG Per day
     Route: 048

REACTIONS (10)
  - Rash generalised [Recovered/Resolved]
  - Photosensitivity reaction [Recovered/Resolved]
  - Rash [Recovered/Resolved]
  - Rash [Recovering/Resolving]
  - Somnolence [Unknown]
  - Dizziness [Unknown]
  - Photosensitivity reaction [Recovered/Resolved]
  - Rash [Recovered/Resolved]
  - Rash [Recovering/Resolving]
  - Generalised erythema [Unknown]
